FAERS Safety Report 24438257 (Version 1)
Quarter: 2024Q4

REPORT INFORMATION
  Report Type: Spontaneous
  Country: US (occurrence: None)
  Receive Date: 20241012
  Receipt Date: 20241012
  Transmission Date: 20250115
  Serious: Yes (Life-Threatening, Hospitalization, Disabling)
  Sender: Public
  Company Number: None

PATIENT
  Age: 26 Year
  Sex: Male
  Weight: 81.9 kg

DRUGS (2)
  1. SULFAMETHOXAZOLE\TRIMETHOPRIM [Suspect]
     Active Substance: SULFAMETHOXAZOLE\TRIMETHOPRIM
     Indication: Urinary tract infection
     Dates: start: 20240508, end: 20240527
  2. MULTI-VITAMIN [Concomitant]
     Active Substance: .ALPHA.-TOCOPHEROL ACETATE, DL-\ASCORBIC ACID\CYANOCOBALAMIN\FLUORIDE ION\FOLIC ACID\NIACIN\PYRIDOXI

REACTIONS (11)
  - Acute respiratory failure [None]
  - Pneumothorax [None]
  - Pneumomediastinum [None]
  - Subcutaneous emphysema [None]
  - Viral infection [None]
  - Condition aggravated [None]
  - Back pain [None]
  - Musculoskeletal chest pain [None]
  - Flatulence [None]
  - Fatigue [None]
  - Product prescribing error [None]

NARRATIVE: CASE EVENT DATE: 20240527
